FAERS Safety Report 19659198 (Version 3)
Quarter: 2022Q1

REPORT INFORMATION
  Report Type: Other
  Country: KR (occurrence: KR)
  Receive Date: 20210805
  Receipt Date: 20220224
  Transmission Date: 20220423
  Serious: Yes (Other)
  Sender: FDA-Public Use
  Company Number: KR-CHUGAI-2021008318

PATIENT
  Age: 45 Year
  Sex: Male
  Weight: 70 kg

DRUGS (10)
  1. EMICIZUMAB [Suspect]
     Active Substance: EMICIZUMAB
     Indication: Haemophilia A with anti factor VIII
     Route: 058
     Dates: start: 20201118, end: 20201215
  2. EMICIZUMAB [Suspect]
     Active Substance: EMICIZUMAB
     Route: 058
     Dates: start: 20201216, end: 20210128
  3. EMICIZUMAB [Suspect]
     Active Substance: EMICIZUMAB
     Route: 058
     Dates: start: 20210129, end: 20210503
  4. EMICIZUMAB [Suspect]
     Active Substance: EMICIZUMAB
     Route: 058
     Dates: start: 20210504, end: 20210524
  5. EMICIZUMAB [Suspect]
     Active Substance: EMICIZUMAB
     Route: 058
     Dates: start: 20210525
  6. NOVOSEVEN RT [Concomitant]
     Active Substance: COAGULATION FACTOR VIIA RECOMBINANT HUMAN
     Indication: Haemarthrosis
     Dosage: 100 KILO-INTERNATIONAL UNIT, PRN
     Route: 042
     Dates: start: 20201123, end: 20210308
  7. NOVOSEVEN RT [Concomitant]
     Active Substance: COAGULATION FACTOR VIIA RECOMBINANT HUMAN
     Indication: Oedema peripheral
  8. NOVOSEVEN RT [Concomitant]
     Active Substance: COAGULATION FACTOR VIIA RECOMBINANT HUMAN
     Indication: Arthralgia
  9. MEPERIDINE HYDROCHLORIDE [Concomitant]
     Active Substance: MEPERIDINE HYDROCHLORIDE
     Indication: Pain management
     Dosage: 75 MILLIGRAM
     Route: 042
     Dates: start: 20201118, end: 20201118
  10. TRAMADOL HYDROCHLORIDE [Concomitant]
     Active Substance: TRAMADOL HYDROCHLORIDE
     Indication: Pain management
     Dosage: 50 MILLIGRAM
     Route: 042
     Dates: start: 20210317, end: 20210317

REACTIONS (1)
  - Haemarthrosis [Recovered/Resolved]

NARRATIVE: CASE EVENT DATE: 20210727
